FAERS Safety Report 4716083-5 (Version None)
Quarter: 2005Q3

REPORT INFORMATION
  Report Type: 
  Country: None (occurrence: None)
  Receive Date: 20050718
  Receipt Date: 20050707
  Transmission Date: 20060218
  Serious: Yes (Hospitalization)
  Sender: FDA-Public Use
  Company Number: US-JNJFOC-20041006874

PATIENT
  Sex: Male

DRUGS (1)
  1. DURAGESIC-100 [Suspect]
     Route: 062

REACTIONS (8)
  - ASTHENIA [None]
  - CONSTIPATION [None]
  - DEHYDRATION [None]
  - DIZZINESS [None]
  - HEPATOMEGALY [None]
  - NAUSEA [None]
  - PANCREATIC ENZYMES INCREASED [None]
  - VOMITING [None]
